FAERS Safety Report 7820978-3 (Version None)
Quarter: 2011Q4

REPORT INFORMATION
  Report Type: 
  Country: None (occurrence: None)
  Receive Date: 20111018
  Receipt Date: 20111013
  Transmission Date: 20120403
  Serious: Yes (Other)
  Sender: FDA-Public Use
  Company Number: PR-ABBOTT-11P-131-0857307-00

PATIENT
  Sex: Female

DRUGS (1)
  1. HUMIRA [Suspect]
     Indication: PSORIATIC ARTHROPATHY
     Dosage: ONE PEN EVERY 15 DAYS
     Route: 058
     Dates: start: 20110501, end: 20110801

REACTIONS (4)
  - ALOPECIA [None]
  - ARTHRALGIA [None]
  - SKIN DISORDER [None]
  - SYSTEMIC LUPUS ERYTHEMATOSUS [None]
